FAERS Safety Report 16993940 (Version 2)
Quarter: 2020Q1

REPORT INFORMATION
  Report Type: Spontaneous
  Country: JP (occurrence: JP)
  Receive Date: 20191105
  Receipt Date: 20200326
  Transmission Date: 20200409
  Serious: Yes (Other)
  Sender: FDA-Public Use
  Company Number: NVSJ2019JP001889

PATIENT
  Age: 85 Year
  Sex: Male
  Weight: 52 kg

DRUGS (3)
  1. RIFAMPICIN [Suspect]
     Active Substance: RIFAMPIN
     Indication: PULMONARY TUBERCULOSIS
     Dosage: 450 MG
     Route: 048
     Dates: start: 201701, end: 201705
  2. ETHAMBUTOL [Suspect]
     Active Substance: ETHAMBUTOL HYDROCHLORIDE
     Indication: PULMONARY TUBERCULOSIS
     Dosage: 750 MG
     Route: 048
  3. ISONIAZID. [Concomitant]
     Active Substance: ISONIAZID
     Indication: PULMONARY TUBERCULOSIS
     Dosage: 300 MG
     Route: 065

REACTIONS (8)
  - Platelet count decreased [Recovering/Resolving]
  - Megakaryocytes decreased [Recovering/Resolving]
  - White blood cell count decreased [Recovering/Resolving]
  - Full blood count decreased [Recovering/Resolving]
  - Erythroblast count decreased [Recovering/Resolving]
  - Haemoglobin decreased [Recovering/Resolving]
  - Aplastic anaemia [Recovering/Resolving]
  - Granulocyte count decreased [Recovering/Resolving]
